FAERS Safety Report 6006755-7 (Version None)
Quarter: 2008Q4

REPORT INFORMATION
  Report Type: 
  Country: None (occurrence: None)
  Receive Date: 20081217
  Receipt Date: 20081211
  Transmission Date: 20090506
  Serious: Yes (Other)
  Sender: FDA-Public Use
  Company Number: CA-ASTRAZENECA-2008UW27848

PATIENT
  Sex: Female

DRUGS (4)
  1. ARIMIDEX [Suspect]
     Route: 048
     Dates: start: 20071201
  2. ARIMIDEX [Suspect]
     Route: 048
     Dates: start: 20080101, end: 20081201
  3. FOSAMAX [Suspect]
     Dates: start: 20071201
  4. FOSAMAX [Suspect]
     Dates: start: 20080101, end: 20080601

REACTIONS (14)
  - ARTHRALGIA [None]
  - BALANCE DISORDER [None]
  - COUGH [None]
  - ERYTHEMA [None]
  - EYE SWELLING [None]
  - FACIAL PALSY [None]
  - FALL [None]
  - FOOT FRACTURE [None]
  - HEADACHE [None]
  - HYPOAESTHESIA [None]
  - NERVE INJURY [None]
  - PARAESTHESIA [None]
  - UPPER LIMB FRACTURE [None]
  - URTICARIA [None]
